FAERS Safety Report 4345893-1 (Version None)
Quarter: 2004Q2

REPORT INFORMATION
  Report Type: 
  Country: None (occurrence: None)
  Receive Date: 20040423
  Receipt Date: 20040423
  Transmission Date: 20050107
  Serious: Yes (Hospitalization)
  Sender: FDA-Public Use
  Company Number: None

PATIENT
  Sex: Female
  Weight: 73 kg

DRUGS (3)
  1. CISPLATIN [Suspect]
     Indication: NON-SMALL CELL LUNG CANCER
     Dosage: 86 MG AURICULAR
     Route: 001
     Dates: start: 20040301, end: 20040412
  2. ETOPOSIDE [Suspect]
     Dosage: 86 MG
     Dates: start: 20040301, end: 20040409
  3. CHEST RADIATION [Concomitant]

REACTIONS (7)
  - ACUTE MYOCARDIAL INFARCTION [None]
  - FEELING ABNORMAL [None]
  - HEART RATE INCREASED [None]
  - LOSS OF CONSCIOUSNESS [None]
  - PALPITATIONS [None]
  - RESPIRATORY RATE INCREASED [None]
  - SYNCOPE [None]
